FAERS Safety Report 20170879 (Version 1)
Quarter: 2021Q4

REPORT INFORMATION
  Report Type: Spontaneous
  Country: US (occurrence: None)
  Receive Date: 20211210
  Receipt Date: 20211210
  Transmission Date: 20220303
  Serious: Yes (Other)
  Sender: FDA-Public Use
  Company Number: None

PATIENT
  Age: 76 Year
  Sex: Female
  Weight: 60.8 kg

DRUGS (1)
  1. BACTRIM DS [Suspect]
     Active Substance: SULFAMETHOXAZOLE\TRIMETHOPRIM
     Indication: Pain in extremity
     Dosage: OTHER QUANTITY : 800/160;?FREQUENCY : ONCE;?
     Route: 048
     Dates: start: 20211209, end: 20211209

REACTIONS (3)
  - Anxiety [None]
  - Feeling jittery [None]
  - Abdominal discomfort [None]

NARRATIVE: CASE EVENT DATE: 20211210
